FAERS Safety Report 15696683 (Version 2)
Quarter: 2019Q1

REPORT INFORMATION
  Report Type: Spontaneous
  Country: US (occurrence: US)
  Receive Date: 20181206
  Receipt Date: 20190102
  Transmission Date: 20190417
  Serious: Yes (Hospitalization)
  Sender: FDA-Public Use
  Company Number: US-CELGENEUS-USA-20181200546

PATIENT
  Age: 58 Year
  Sex: Male

DRUGS (5)
  1. CHOLESTYRAMINE. [Concomitant]
     Active Substance: CHOLESTYRAMINE
     Indication: PRODUCT USED FOR UNKNOWN INDICATION
     Route: 065
  2. REVLIMID [Suspect]
     Active Substance: LENALIDOMIDE
     Dosage: 5 MILLIGRAM
     Route: 048
     Dates: start: 201510
  3. REVLIMID [Suspect]
     Active Substance: LENALIDOMIDE
     Indication: PLASMA CELL MYELOMA
     Dosage: 25 MILLIGRAM
     Route: 048
     Dates: start: 201302
  4. REVLIMID [Suspect]
     Active Substance: LENALIDOMIDE
     Dosage: 25MG-10MG
     Route: 048
     Dates: start: 201310
  5. REVLIMID [Suspect]
     Active Substance: LENALIDOMIDE
     Dosage: 5MG-15 MG
     Route: 048
     Dates: start: 201401

REACTIONS (1)
  - Fournier^s gangrene [Unknown]

NARRATIVE: CASE EVENT DATE: 20181112
